FAERS Safety Report 12586568 (Version 3)
Quarter: 2016Q3

REPORT INFORMATION
  Report Type: Spontaneous
  Country: US (occurrence: US)
  Receive Date: 20160725
  Receipt Date: 20160808
  Transmission Date: 20161109
  Serious: No
  Sender: FDA-Public Use
  Company Number: US-PFIZER INC-2016324979

PATIENT
  Age: 80 Year
  Sex: Female
  Weight: 85.71 kg

DRUGS (2)
  1. IBRANCE [Suspect]
     Active Substance: PALBOCICLIB
     Dosage: 100 MG, CYCLIC (D 1-21 Q 28 DAYS))
     Route: 048
     Dates: start: 20160713
  2. IBRANCE [Suspect]
     Active Substance: PALBOCICLIB
     Indication: BREAST CANCER METASTATIC
     Dosage: 125 MG, CYCLIC (D1-D21 Q 28 D)
     Route: 048
     Dates: start: 20160526, end: 20160623

REACTIONS (6)
  - Pain in extremity [Unknown]
  - Arthralgia [Unknown]
  - Rash [Unknown]
  - White blood cell count decreased [Unknown]
  - Herpes zoster [Unknown]
  - Sciatica [Unknown]

NARRATIVE: CASE EVENT DATE: 201606
